FAERS Safety Report 10498326 (Version 1)
Quarter: 2014Q3

REPORT INFORMATION
  Report Type: Spontaneous
  Country: US (occurrence: None)
  Receive Date: 20140815
  Receipt Date: 20140815
  Transmission Date: 20150326
  Serious: Yes (Other)
  Sender: FDA-Public Use
  Company Number: ADR-2014-00474

PATIENT
  Age: 54 Year
  Sex: Male

DRUGS (1)
  1. BACLOFEN INTRATHECAL [Suspect]
     Active Substance: BACLOFEN
     Indication: POST LAMINECTOMY SYNDROME

REACTIONS (3)
  - Pain [None]
  - Neck pain [None]
  - Musculoskeletal pain [None]

NARRATIVE: CASE EVENT DATE: 20140205
